FAERS Safety Report 19120628 (Version 1)
Quarter: 2021Q2

REPORT INFORMATION
  Report Type: Spontaneous
  Country: US (occurrence: US)
  Receive Date: 20210411
  Receipt Date: 20210411
  Transmission Date: 20210717
  Serious: Yes (Disabling)
  Sender: FDA-Public Use
  Company Number: None

PATIENT
  Age: 8 Year
  Sex: Female
  Weight: 26.1 kg

DRUGS (3)
  1. KIDS MULTIVITAMIN [Concomitant]
  2. CLEARLAX [Suspect]
     Active Substance: POLYETHYLENE GLYCOL 3350
     Indication: CONSTIPATION
     Route: 048
     Dates: start: 20190212, end: 20210316
  3. MIRALAX [Suspect]
     Active Substance: POLYETHYLENE GLYCOL 3350

REACTIONS (4)
  - Weight decreased [None]
  - Tic [None]
  - Headache [None]
  - Blepharospasm [None]

NARRATIVE: CASE EVENT DATE: 20210202
